FAERS Safety Report 9991649 (Version 3)
Quarter: 2014Q2

REPORT INFORMATION
  Report Type: Spontaneous
  Country: FI (occurrence: FI)
  Receive Date: 20140310
  Receipt Date: 20140404
  Transmission Date: 20141212
  Serious: Yes (Other)
  Sender: FDA-Public Use
  Company Number: FI-JNJFOC-20140205335

PATIENT
  Age: 26 Year
  Sex: Female

DRUGS (4)
  1. RISPERDAL [Suspect]
     Indication: DELUSION
     Route: 048
     Dates: start: 201303, end: 20140206
  2. ABILIFY [Concomitant]
     Indication: DELUSION
     Route: 048
  3. SEPRAM [Concomitant]
     Indication: DEPRESSION
     Route: 048
  4. KETIPINOR [Concomitant]
     Indication: INSOMNIA
     Route: 048

REACTIONS (4)
  - Ovarian cyst [Recovered/Resolved]
  - Blood prolactin increased [Recovered/Resolved]
  - Hirsutism [Recovered/Resolved]
  - Mucous membrane disorder [Recovered/Resolved]
